FAERS Safety Report 25174277 (Version 1)
Quarter: 2025Q2

REPORT INFORMATION
  Report Type: Spontaneous
  Country: US (occurrence: None)
  Receive Date: 20250408
  Receipt Date: 20250408
  Transmission Date: 20250716
  Serious: No
  Sender: FDA-CTU
  Company Number: None

PATIENT
  Age: 68 Year
  Sex: Female

DRUGS (1)
  1. MIEBO [Suspect]
     Active Substance: PERFLUOROHEXYLOCTANE
     Dosage: 1 GTT DROP(S) 4 TIMES A DY OPHTHALMIC
     Route: 047

REACTIONS (1)
  - Eye swelling [None]

NARRATIVE: CASE EVENT DATE: 20250223
